FAERS Safety Report 9641275 (Version 1)
Quarter: 2013Q4

REPORT INFORMATION
  Report Type: Spontaneous
  Country: US (occurrence: US)
  Receive Date: 20131023
  Receipt Date: 20131023
  Transmission Date: 20140711
  Serious: Yes (Other)
  Sender: FDA-Public Use
  Company Number: US-PFIZER INC-2013299249

PATIENT
  Sex: Female

DRUGS (6)
  1. SUTENT [Suspect]
     Dosage: 50 MG, CYCLIC
  2. SUTENT [Suspect]
     Dosage: 37.5 MG, CYCLIC
  3. SUTENT [Suspect]
     Dosage: 25 MG, DAILY CYCLIC
     Dates: start: 201009
  4. METFORMIN [Concomitant]
     Dosage: UNK
  5. MICARDIS [Concomitant]
     Dosage: UNK
  6. CELEXA [Concomitant]
     Dosage: UNK

REACTIONS (6)
  - Renal failure [Unknown]
  - Oral pain [Unknown]
  - Dysgeusia [Unknown]
  - Fatigue [Unknown]
  - Gingival swelling [Unknown]
  - Palmar-plantar erythrodysaesthesia syndrome [Unknown]
